FAERS Safety Report 4983840-X (Version None)
Quarter: 2006Q2

REPORT INFORMATION
  Report Type: 
  Country: None (occurrence: None)
  Receive Date: 20060426
  Receipt Date: 20051019
  Transmission Date: 20061013
  Serious: Yes (Hospitalization, Disabling, Other)
  Sender: FDA-Public Use
  Company Number: US-MERCK-0510USA08301

PATIENT
  Age: 48 Year
  Sex: Female
  Weight: 76 kg

DRUGS (3)
  1. VIOXX [Suspect]
     Indication: ARTHRITIS
     Route: 048
     Dates: start: 19990606, end: 20041001
  2. LORTAB [Concomitant]
     Route: 065
  3. OXYCODONE [Concomitant]
     Route: 065

REACTIONS (17)
  - ACUTE SINUSITIS [None]
  - ASTHMA [None]
  - AURICULOTEMPORAL SYNDROME [None]
  - BACK PAIN [None]
  - CELLULITIS [None]
  - CEREBROVASCULAR ACCIDENT [None]
  - CHEST PAIN [None]
  - GASTROENTERITIS [None]
  - HYPERKALAEMIA [None]
  - JOINT SWELLING [None]
  - NON-CARDIAC CHEST PAIN [None]
  - OTITIS EXTERNA [None]
  - RECTAL HAEMORRHAGE [None]
  - TINEA INFECTION [None]
  - TYMPANIC MEMBRANE PERFORATION [None]
  - UPPER RESPIRATORY TRACT INFECTION [None]
  - VAGINAL HAEMORRHAGE [None]
